APPROVED DRUG PRODUCT: FLUVOXAMINE MALEATE
Active Ingredient: FLUVOXAMINE MALEATE
Strength: 150MG
Dosage Form/Route: CAPSULE, EXTENDED RELEASE;ORAL
Application: A091482 | Product #002 | TE Code: AB
Applicant: ACTAVIS ELIZABETH LLC
Approved: Nov 18, 2013 | RLD: No | RS: Yes | Type: RX